FAERS Safety Report 6400041-9 (Version None)
Quarter: 2009Q4

REPORT INFORMATION
  Report Type: 
  Country: None (occurrence: None)
  Receive Date: 20091014
  Receipt Date: 20091006
  Transmission Date: 20100525
  Serious: Yes (Death, Hospitalization)
  Sender: FDA-Public Use
  Company Number: A0788545A

PATIENT
  Age: 53 Year
  Sex: Male

DRUGS (7)
  1. AVANDIA [Suspect]
     Indication: DIABETES MELLITUS
     Dosage: 8MG PER DAY
     Route: 048
     Dates: start: 20010101, end: 20040101
  2. ATENOLOL [Concomitant]
  3. ASPIRIN [Concomitant]
  4. LEXAPRO [Concomitant]
  5. INSULIN [Concomitant]
  6. LIPITOR [Concomitant]
  7. DIABETA [Concomitant]

REACTIONS (2)
  - CARDIAC FAILURE CONGESTIVE [None]
  - MYOCARDIAL INFARCTION [None]
